FAERS Safety Report 9005538 (Version 2)
Quarter: 2013Q2

REPORT INFORMATION
  Report Type: Spontaneous
  Country: TR (occurrence: TR)
  Receive Date: 20130109
  Receipt Date: 20130515
  Transmission Date: 20140414
  Serious: Yes (Hospitalization)
  Sender: FDA-Public Use
  Company Number: TR-PFIZER INC-2013008961

PATIENT
  Age: 60 Year
  Sex: Male

DRUGS (1)
  1. NORVASC [Suspect]
     Dosage: UNK

REACTIONS (1)
  - Generalised oedema [Unknown]
